FAERS Safety Report 8060086-2 (Version None)
Quarter: 2012Q1

REPORT INFORMATION
  Report Type: 
  Country: None (occurrence: None)
  Receive Date: 20120120
  Receipt Date: 20120110
  Transmission Date: 20120608
  Serious: Yes (Other)
  Sender: FDA-Public Use
  Company Number: GB-MERCK-1201GBR00031

PATIENT
  Age: 80 Year
  Sex: Female
  Weight: 90 kg

DRUGS (13)
  1. FOSAMAX [Suspect]
     Route: 048
     Dates: start: 20110901, end: 20111116
  2. AMOXICILLIN [Concomitant]
     Route: 065
     Dates: start: 20111214
  3. FUROSEMIDE [Concomitant]
     Route: 065
     Dates: start: 20110912
  4. ALLOPURINOL [Concomitant]
     Route: 065
     Dates: start: 20110921
  5. COZAAR [Concomitant]
     Route: 048
     Dates: start: 20110912
  6. ISOSORBIDE MONONITRATE [Concomitant]
     Route: 065
     Dates: start: 20110921
  7. ALBUTEROL [Concomitant]
     Route: 065
     Dates: start: 20110921
  8. WARFARIN SODIUM [Concomitant]
     Route: 065
     Dates: start: 20111017
  9. ACETAMINOPHEN [Concomitant]
     Route: 065
     Dates: start: 20111117, end: 20111215
  10. ZOCOR [Concomitant]
     Route: 048
     Dates: start: 20111108
  11. BISOPROLOL [Concomitant]
     Route: 065
     Dates: start: 20110921
  12. CALCIUM CARBONATE AND CHOLECALCIFEROL [Concomitant]
     Route: 065
     Dates: start: 20110921
  13. KETOPROFEN [Concomitant]
     Route: 065
     Dates: start: 20111117, end: 20111215

REACTIONS (3)
  - PAIN IN JAW [None]
  - OSTEONECROSIS OF JAW [None]
  - TOOTH LOSS [None]
